FAERS Safety Report 6060072-8 (Version None)
Quarter: 2009Q1

REPORT INFORMATION
  Report Type: 
  Country: None (occurrence: None)
  Receive Date: 20090130
  Receipt Date: 20090120
  Transmission Date: 20090719
  Serious: Yes (Hospitalization)
  Sender: FDA-Public Use
  Company Number: FR-ELI_LILLY_AND_COMPANY-FR200809001149

PATIENT
  Sex: Male

DRUGS (2)
  1. ZYPREXA [Suspect]
     Indication: DELIRIUM
     Dosage: 10 MG, 2/D
     Dates: start: 20080729, end: 20080801
  2. NOZINAN [Concomitant]
     Indication: DELIRIUM
     Dosage: 20 MG, 2/D
     Route: 048
     Dates: start: 20080729

REACTIONS (2)
  - BLOOD AMYLASE INCREASED [None]
  - LIPASE INCREASED [None]
